FAERS Safety Report 22152494 (Version 1)
Quarter: 2023Q1

REPORT INFORMATION
  Report Type: Spontaneous
  Country: US (occurrence: US)
  Receive Date: 20230329
  Receipt Date: 20230329
  Transmission Date: 20230417
  Serious: No
  Sender: FDA-Public Use
  Company Number: US-VIOKACE LLC-2022AIMT02857

PATIENT

DRUGS (2)
  1. VIOKACE [Suspect]
     Active Substance: PANCRELIPASE AMYLASE\PANCRELIPASE LIPASE\PANCRELIPASE PROTEASE
     Indication: Pancreatic failure
     Dosage: 20000 USP UNIT, 3 WITH A MEAL AND 1 WITH A SNACK
     Route: 048
     Dates: start: 2020
  2. VIOKACE [Suspect]
     Active Substance: PANCRELIPASE AMYLASE\PANCRELIPASE LIPASE\PANCRELIPASE PROTEASE
     Dosage: 20000 USP UNIT, ONCE, LAST DOSE PRIOR EVENT
     Route: 048

REACTIONS (1)
  - Intentional overdose [Unknown]
